FAERS Safety Report 7426769-X (Version None)
Quarter: 2011Q2

REPORT INFORMATION
  Report Type: 
  Country: None (occurrence: None)
  Receive Date: 20110415
  Receipt Date: 20110415
  Transmission Date: 20111010
  Serious: No
  Sender: FDA-Public Use
  Company Number: None

PATIENT
  Sex: Male
  Weight: 125.1928 kg

DRUGS (5)
  1. TAMSULOSIN HCL [Suspect]
     Dosage: 0.4MG 2 CAPS QD ORAL
     Route: 048
     Dates: start: 20100416
  2. TAMSULOSIN HCL [Suspect]
     Dosage: 0.4MG 2 CAPS QD ORAL
     Route: 048
     Dates: start: 20100601
  3. TAMSULOSIN HCL [Suspect]
     Dosage: 0.4MG 2 CAPS QD ORAL
     Route: 048
     Dates: start: 20110113
  4. TAMSULOSIN HCL [Suspect]
     Dosage: 0.4MG 2 CAPS QD ORAL
     Route: 048
     Dates: start: 20100314
  5. TAMSULOSIN HCL [Suspect]
     Dosage: 0.4MG 2 CAPS QD ORAL
     Route: 048
     Dates: start: 20100521

REACTIONS (1)
  - DRUG INEFFECTIVE [None]
